FAERS Safety Report 7807516-6 (Version None)
Quarter: 2011Q4

REPORT INFORMATION
  Report Type: 
  Country: None (occurrence: None)
  Receive Date: 20111011
  Receipt Date: 20111005
  Transmission Date: 20120403
  Serious: Yes (Hospitalization)
  Sender: FDA-Public Use
  Company Number: US-GLAXOSMITHKLINE-A0880792A

PATIENT
  Age: 79 Year
  Sex: Female

DRUGS (5)
  1. AVANDIA [Suspect]
     Indication: DIABETES MELLITUS
     Dosage: 4MG PER DAY
     Route: 048
     Dates: start: 20050401, end: 20070501
  2. LEVOTHYROXINE SODIUM [Concomitant]
  3. TOPROL-XL [Concomitant]
  4. BENICAR [Concomitant]
  5. NORVASC [Concomitant]

REACTIONS (2)
  - CARDIAC FAILURE [None]
  - CARDIAC PACEMAKER INSERTION [None]
